FAERS Safety Report 21791458 (Version 4)
Quarter: 2023Q1

REPORT INFORMATION
  Report Type: Report from Study
  Country: KR (occurrence: KR)
  Receive Date: 20221228
  Receipt Date: 20230227
  Transmission Date: 20230417
  Serious: Yes (Hospitalization, Other)
  Sender: FDA-Public Use
  Company Number: KR-CELLTRION INC.-2022KR021775

PATIENT

DRUGS (14)
  1. INVESTIGATIONAL BIOSIMILARS [Suspect]
     Active Substance: INVESTIGATIONAL BIOSIMILARS
     Indication: Chemotherapy
     Dosage: CALCULATED AT 6MG/KG, GIVEN WITH 300MG
     Route: 042
     Dates: start: 20221201, end: 20221221
  2. INVESTIGATIONAL BIOSIMILARS [Suspect]
     Active Substance: INVESTIGATIONAL BIOSIMILARS
     Dosage: 381 MILLIGRAM 2ND INJECTION
     Dates: start: 20221227
  3. INVESTIGATIONAL BIOSIMILARS [Suspect]
     Active Substance: INVESTIGATIONAL BIOSIMILARS
     Dosage: 3RD CYCLE START, HERZUMA 381MG
     Dates: start: 20230117
  4. INVESTIGATIONAL BIOSIMILARS [Suspect]
     Active Substance: INVESTIGATIONAL BIOSIMILARS
     Dosage: HERZUMA 381MG
     Dates: start: 20230209
  5. NERATINIB [Suspect]
     Active Substance: NERATINIB
     Indication: Chemotherapy
     Dosage: UNK, LAST ADMINISTRATION DATE PRIOR TO EVENT ONSET: 21 DEC 2022)
     Route: 048
     Dates: start: 20221201
  6. NERATINIB [Suspect]
     Active Substance: NERATINIB
     Dosage: 6 TABS 240 MG
     Dates: start: 20221227, end: 20230103
  7. NERATINIB [Suspect]
     Active Substance: NERATINIB
     Dosage: NERATINIB 4TABS 160MG
     Dates: start: 20230117
  8. NERATINIB [Suspect]
     Active Substance: NERATINIB
     Dosage: KEEP NERATINIB 4TABS 160MG
     Dates: start: 20230209
  9. JARDIANCE [Concomitant]
     Active Substance: EMPAGLIFLOZIN
     Indication: Diabetes mellitus
     Dosage: 10 MG, QD
     Route: 048
     Dates: start: 20151201, end: 20221221
  10. METFORMIN HYDROCHLORIDE [Concomitant]
     Active Substance: METFORMIN HYDROCHLORIDE
     Indication: Diabetes mellitus
     Dosage: 850 MG, BID
     Route: 048
     Dates: start: 20151201, end: 20221221
  11. FENTORA [Concomitant]
     Active Substance: FENTANYL CITRATE
     Indication: Pain management
     Dosage: 4 TAB QD
     Route: 048
     Dates: start: 20221110
  12. GLICLAZIDE [Concomitant]
     Active Substance: GLICLAZIDE
     Indication: Diabetes mellitus
     Dosage: 40 MG, QD
     Route: 048
     Dates: start: 20221222
  13. NALOXONE HYDROCHLORIDE\OXYCODONE HYDROCHLORIDE [Concomitant]
     Active Substance: NALOXONE HYDROCHLORIDE\OXYCODONE HYDROCHLORIDE
     Indication: Pain management
     Dosage: 10 MG, BID
     Route: 048
     Dates: start: 20221110
  14. LINAGLIPTIN [Concomitant]
     Active Substance: LINAGLIPTIN
     Indication: Diabetes mellitus
     Dosage: 5 MG, QD
     Route: 048
     Dates: start: 20221222

REACTIONS (3)
  - Acute kidney injury [Not Recovered/Not Resolved]
  - Diarrhoea [Recovered/Resolved]
  - Off label use [Unknown]

NARRATIVE: CASE EVENT DATE: 20230117
